FAERS Safety Report 21456683 (Version 1)
Quarter: 2022Q4

REPORT INFORMATION
  Report Type: Spontaneous
  Country: DE (occurrence: DE)
  Receive Date: 20221014
  Receipt Date: 20221014
  Transmission Date: 20230112
  Serious: Yes (Other)
  Sender: FDA-Public Use
  Company Number: None

PATIENT
  Age: 10 Year
  Sex: Female

DRUGS (1)
  1. TACROLIMUS [Suspect]
     Active Substance: TACROLIMUS
     Indication: Seizure
     Dosage: 0.1 MILLIGRAM/KILOGRAM, QD
     Route: 065

REACTIONS (6)
  - Seizure [Recovering/Resolving]
  - Status epilepticus [Unknown]
  - Multiple-drug resistance [Unknown]
  - Off label use [Unknown]
  - Suicidal ideation [Unknown]
  - Product use issue [Unknown]
